FAERS Safety Report 18343986 (Version 1)
Quarter: 2020Q4

REPORT INFORMATION
  Report Type: Spontaneous
  Country: US (occurrence: US)
  Receive Date: 20201001
  Receipt Date: 20201001
  Transmission Date: 20210114
  Serious: No
  Sender: FDA-Public Use
  Company Number: None

PATIENT
  Age: 50 Year
  Sex: Female

DRUGS (22)
  1. HYDROXYZ HCL [Concomitant]
     Active Substance: HYDROXYZINE HYDROCHLORIDE
  2. LORZONE [Concomitant]
     Active Substance: CHLORZOXAZONE
  3. MINOCYCLINE [Concomitant]
     Active Substance: MINOCYCLINE HYDROCHLORIDE
  4. TIZANIDINE. [Concomitant]
     Active Substance: TIZANIDINE
  5. ACYCLOVIR. [Concomitant]
     Active Substance: ACYCLOVIR
  6. OXYCODONE [Concomitant]
     Active Substance: OXYCODONE
  7. PREGABALIN. [Concomitant]
     Active Substance: PREGABALIN
  8. AMOX/K CLAV [Concomitant]
     Active Substance: AMOXICILLIN\CLAVULANATE POTASSIUM
  9. DOXYCYCL HYC [Concomitant]
  10. MUPIROCIN. [Concomitant]
     Active Substance: MUPIROCIN
  11. MEDROXYPR AC [Concomitant]
  12. PREMARIN [Concomitant]
     Active Substance: ESTROGENS, CONJUGATED
  13. TOPIRAMATE. [Concomitant]
     Active Substance: TOPIRAMATE
  14. BACLOFEN. [Concomitant]
     Active Substance: BACLOFEN
  15. IBUPROFEN. [Concomitant]
     Active Substance: IBUPROFEN
  16. NITROFURANTIN [Concomitant]
     Active Substance: NITROFURANTOIN
  17. HUMIRA [Suspect]
     Active Substance: ADALIMUMAB
     Indication: BURSITIS
     Dosage: ?          OTHER FREQUENCY:Q2WK;?
     Route: 058
     Dates: start: 20200418
  18. VALACYLOVIR [Concomitant]
     Active Substance: VALACYCLOVIR HYDROCHLORIDE
  19. CHLORZOXAZON [Concomitant]
     Active Substance: CHLORZOXAZONE
  20. CITALOPRAM [Concomitant]
     Active Substance: CITALOPRAM HYDROBROMIDE
  21. NARCAN [Concomitant]
     Active Substance: NALOXONE HYDROCHLORIDE
  22. PENICILLIN VK [Concomitant]
     Active Substance: PENICILLIN V POTASSIUM

REACTIONS (2)
  - Joint stiffness [None]
  - Therapy interrupted [None]

NARRATIVE: CASE EVENT DATE: 20200929
